FAERS Safety Report 13363152 (Version 1)
Quarter: 2017Q1

REPORT INFORMATION
  Report Type: Spontaneous
  Country: US (occurrence: US)
  Receive Date: 20170322
  Receipt Date: 20170322
  Transmission Date: 20170429
  Serious: Yes (Other)
  Sender: FDA-Public Use
  Company Number: None

PATIENT
  Age: 6 Year
  Sex: Male
  Weight: 21.8 kg

DRUGS (1)
  1. JADENU [Suspect]
     Active Substance: DEFERASIROX
     Indication: SICKLE CELL ANAEMIA
     Dosage: 90MG  X 5
     Route: 048
     Dates: start: 20150717

REACTIONS (3)
  - Vomiting [None]
  - Crying [None]
  - Abdominal pain upper [None]

NARRATIVE: CASE EVENT DATE: 20161207
